FAERS Safety Report 4962381-X (Version None)
Quarter: 2006Q1

REPORT INFORMATION
  Report Type: 
  Country: None (occurrence: None)
  Receive Date: 20060329
  Receipt Date: 20060323
  Transmission Date: 20060701
  Serious: Yes (Other)
  Sender: FDA-Public Use
  Company Number: 2006038167

PATIENT
  Age: 67 Year
  Sex: Female
  Weight: 60.782 kg

DRUGS (4)
  1. NEURONTIN [Suspect]
     Indication: HERPES ZOSTER
     Dosage: 5000 MG
     Dates: end: 20040101
  2. LYRICA [Suspect]
     Indication: HERPES ZOSTER
     Dosage: 50 MG (50 MG, 1 IN 1 D)
     Dates: start: 20060301, end: 20060314
  3. LYRICA [Suspect]
     Indication: POST HERPETIC NEURALGIA
     Dosage: 50 MG (50 MG, 1 IN 1 D)
     Dates: start: 20060301, end: 20060314
  4. LORAZEPAM [Concomitant]

REACTIONS (6)
  - ABDOMINAL DISTENSION [None]
  - ARTHRALGIA [None]
  - EYE PAIN [None]
  - NERVOUS SYSTEM DISORDER [None]
  - PAIN [None]
  - VISION BLURRED [None]
